FAERS Safety Report 21249727 (Version 1)
Quarter: 2022Q3

REPORT INFORMATION
  Report Type: Spontaneous
  Country: US (occurrence: None)
  Receive Date: 20220823
  Receipt Date: 20220823
  Transmission Date: 20221026
  Serious: Yes (Death)
  Sender: FDA-Public Use
  Company Number: None

PATIENT
  Age: 53 Year
  Sex: Female
  Weight: 91.08 kg

DRUGS (16)
  1. CAPECITABINE [Suspect]
     Active Substance: CAPECITABINE
     Indication: Breast cancer female
     Dosage: FREQUENCY : EVERY 12 HOURS;?
     Route: 048
  2. AFLURIA QUADRIVALENT [Concomitant]
  3. AQUAPHOR EXTERNAL OINTMENT [Concomitant]
  4. CALCIUM CARB-CHOLECALIFEROL [Concomitant]
  5. CEPHALEXIN [Concomitant]
     Active Substance: CEPHALEXIN
  6. COLACE [Concomitant]
     Active Substance: DOCUSATE SODIUM
  7. IBUPROFEN [Concomitant]
     Active Substance: IBUPROFEN
  8. KEYTRUDA [Concomitant]
     Active Substance: PEMBROLIZUMAB
  9. LASIX [Concomitant]
     Active Substance: FUROSEMIDE
  10. PERCOCET [Concomitant]
     Active Substance: ACETAMINOPHEN\OXYCODONE HYDROCHLORIDE
  11. PREDNISONE [Concomitant]
     Active Substance: PREDNISONE
  12. ROBITUSSIN SILVER [Concomitant]
  13. SULFADIAZINE [Concomitant]
     Active Substance: SULFADIAZINE
  14. TUMS [Concomitant]
     Active Substance: CALCIUM CARBONATE
  15. TYLENOL [Concomitant]
     Active Substance: ACETAMINOPHEN
  16. ZYRTEC-D [Concomitant]
     Active Substance: CETIRIZINE HYDROCHLORIDE\PSEUDOEPHEDRINE HYDROCHLORIDE

REACTIONS (1)
  - Death [None]
